FAERS Safety Report 16593802 (Version 2)
Quarter: 2020Q1

REPORT INFORMATION
  Report Type: Report from Study
  Country: GB (occurrence: GB)
  Receive Date: 20190718
  Receipt Date: 20200305
  Transmission Date: 20200409
  Serious: Yes (Hospitalization, Other)
  Sender: FDA-Public Use
  Company Number: GB-MYLANLABS-2019M1067137

PATIENT
  Age: 44 Year
  Sex: Female

DRUGS (66)
  1. PERTUZUMAB. [Suspect]
     Active Substance: PERTUZUMAB
     Indication: BREAST CANCER
     Dosage: 420 MILLIGRAM, Q3W
     Route: 042
     Dates: start: 20161117, end: 20181122
  2. DEXAMETHASONE. [Concomitant]
     Active Substance: DEXAMETHASONE
     Dosage: 1 UNK
     Route: 048
     Dates: start: 20170831, end: 20180308
  3. FLUCLOXACILLIN [Concomitant]
     Active Substance: FLUCLOXACILLIN
     Dosage: 2000 MILLIGRAM, QD
     Route: 048
     Dates: start: 20170406, end: 20170413
  4. DEXAMETHASONE. [Concomitant]
     Active Substance: DEXAMETHASONE
     Dosage: 8 MILLIGRAM, QD
     Route: 048
     Dates: start: 20181208, end: 20181213
  5. BUPRENORPHINE. [Concomitant]
     Active Substance: BUPRENORPHINE
     Indication: PAIN
     Dosage: 5 MICROGRAM, QW
     Route: 062
     Dates: start: 20181023, end: 20181212
  6. FRUSEMIDE                          /00032601/ [Concomitant]
     Active Substance: FUROSEMIDE
     Indication: OEDEMA PERIPHERAL
     Dosage: 40 MILLIGRAM
     Route: 048
     Dates: start: 20170308, end: 20190326
  7. NAPROXEN. [Concomitant]
     Active Substance: NAPROXEN
     Dosage: 1000 MILLIGRAM, QD
     Route: 048
     Dates: start: 20170922, end: 20190326
  8. LAXIDO [Concomitant]
     Active Substance: POLYETHYLENE GLYCOL 3350\POTASSIUM CHLORIDE\SODIUM BICARBONATE\SODIUM CHLORIDE
     Dosage: 80 MILLIGRAM, QD
     Route: 048
     Dates: start: 20171101, end: 20171130
  9. MOVICOL [Concomitant]
     Active Substance: POLYETHYLENE GLYCOL 3350\POTASSIUM CHLORIDE\SODIUM BICARBONATE\SODIUM CHLORIDE
     Indication: CONSTIPATION
     Dosage: 1 POWDER SACHET
     Route: 048
     Dates: end: 20190326
  10. CO-AMOXICLAV                       /00756801/ [Concomitant]
     Active Substance: AMOXICILLIN\CLAVULANIC ACID
     Indication: LOWER RESPIRATORY TRACT INFECTION
     Dosage: 1500 MILLIGRAM, QD
     Route: 048
     Dates: start: 20170125, end: 20170130
  11. TRASTUZUMAB. [Suspect]
     Active Substance: TRASTUZUMAB
     Indication: BREAST CANCER
     Dosage: 600 MILLIGRAM, Q3W
     Route: 042
     Dates: start: 20161117, end: 20181122
  12. PERTUZUMAB. [Suspect]
     Active Substance: PERTUZUMAB
     Indication: HER-2 POSITIVE BREAST CANCER
     Dosage: PLANNED NUMBER OF CYCLES COMPLETED
     Route: 042
     Dates: start: 20161020, end: 20161020
  13. RAMIPRIL. [Concomitant]
     Active Substance: RAMIPRIL
     Dosage: 1.25 MILLIGRAM, QD
     Route: 048
     Dates: start: 20170608
  14. DEXAMETHASONE. [Concomitant]
     Active Substance: DEXAMETHASONE
     Dosage: 8 MILLIGRAM
     Route: 048
     Dates: start: 20161116, end: 20161119
  15. DICLOFENAC [Concomitant]
     Active Substance: DICLOFENAC
     Dosage: UNK
     Route: 061
     Dates: start: 20181023, end: 20190326
  16. TRASTUZUMAB EMTANSINE [Suspect]
     Active Substance: ADO-TRASTUZUMAB EMTANSINE
     Indication: HER-2 POSITIVE BREAST CANCER
     Dosage: 300 MILLIGRAM, Q3W
     Route: 042
     Dates: start: 20181214
  17. DOCETAXEL. [Suspect]
     Active Substance: DOCETAXEL
     Indication: HER-2 POSITIVE BREAST CANCER
     Dosage: 120 MILLIGRAM, Q3W (6 CYCLES)
     Route: 042
     Dates: start: 20161117, end: 20170321
  18. DEXAMETHASONE. [Concomitant]
     Active Substance: DEXAMETHASONE
     Dosage: 0.5 MILLIGRAM, QD
     Route: 048
     Dates: start: 20180308, end: 20180419
  19. DEXAMETHASONE. [Concomitant]
     Active Substance: DEXAMETHASONE
     Dosage: UNK, QD
     Route: 048
     Dates: start: 20180621
  20. DEXAMETHASONE. [Concomitant]
     Active Substance: DEXAMETHASONE
     Dosage: 0.25 MILLIGRAM, QD
     Route: 048
     Dates: start: 20180319, end: 20180510
  21. FRUSEMIDE                          /00032601/ [Concomitant]
     Active Substance: FUROSEMIDE
     Dosage: UNK UNK, QD
     Route: 048
     Dates: start: 20170510, end: 20190326
  22. BISACODYL. [Concomitant]
     Active Substance: BISACODYL
     Dosage: UNK
     Route: 048
     Dates: start: 20171009, end: 20190326
  23. LAXIDO [Concomitant]
     Active Substance: POLYETHYLENE GLYCOL 3350\POTASSIUM CHLORIDE\SODIUM BICARBONATE\SODIUM CHLORIDE
     Dosage: 40 MILLIGRAM, QD
     Route: 048
     Dates: start: 20171012, end: 20171101
  24. MACROGOL [Concomitant]
     Active Substance: POLYETHYLENE GLYCOLS
     Indication: CONSTIPATION
     Dosage: 2 OTHER
     Route: 048
     Dates: start: 20170922
  25. LEVETIRACETAM. [Concomitant]
     Active Substance: LEVETIRACETAM
     Indication: SEIZURE
     Dosage: 500 MILLIGRAM, QD
     Route: 048
     Dates: start: 20181213, end: 20190103
  26. LEVETIRACETAM. [Concomitant]
     Active Substance: LEVETIRACETAM
     Dosage: 1000 MILLIGRAM, QD
     Route: 048
     Dates: start: 20190103, end: 20190326
  27. GABAPENTIN. [Concomitant]
     Active Substance: GABAPENTIN
     Indication: PAIN
     Dosage: 900 MILLIGRAM, QD
     Route: 048
     Dates: start: 20171116, end: 20180621
  28. ONDANSETRON [Concomitant]
     Active Substance: ONDANSETRON
     Indication: NAUSEA
     Dosage: 4 MILLIGRAM
     Route: 048
     Dates: start: 20170510
  29. CO-AMOXICLAV                       /00756801/ [Concomitant]
     Active Substance: AMOXICILLIN\CLAVULANIC ACID
     Dosage: 1500 MILLIGRAM, QD
     Route: 048
     Dates: start: 20161207
  30. DEXAMETHASONE. [Concomitant]
     Active Substance: DEXAMETHASONE
     Dosage: 16 MILLIGRAM, QD
     Route: 048
     Dates: start: 20181206, end: 20181207
  31. DEXAMETHASONE. [Concomitant]
     Active Substance: DEXAMETHASONE
     Dosage: 2 MILLIGRAM, QD
     Route: 048
     Dates: start: 20170308, end: 20170831
  32. DEXAMETHASONE. [Concomitant]
     Active Substance: DEXAMETHASONE
     Dosage: 6 MILLIGRAM
     Route: 048
     Dates: start: 20181205, end: 20181205
  33. ORAMORPH [Concomitant]
     Active Substance: MORPHINE SULFATE
     Dosage: 5 MILLIGRAM
     Route: 048
     Dates: start: 20180830, end: 20190326
  34. VOLTAROL [Concomitant]
     Active Substance: DICLOFENAC SODIUM
     Indication: PAIN
     Dosage: 1 GTT DROPS
     Route: 061
     Dates: start: 20181023
  35. FLUCONAZOLE. [Concomitant]
     Active Substance: FLUCONAZOLE
     Indication: ORAL CANDIDIASIS
     Dosage: 50 MILLIGRAM, QD
     Route: 048
     Dates: start: 20161207
  36. METOCLOPRAMIDE. [Concomitant]
     Active Substance: METOCLOPRAMIDE
     Indication: NAUSEA
     Dosage: 10 UNK, QD
     Route: 042
     Dates: start: 20161117, end: 20161117
  37. TRASTUZUMAB. [Suspect]
     Active Substance: TRASTUZUMAB
     Indication: HER-2 POSITIVE BREAST CANCER
     Dosage: PLANNED NUMBER OF CYCLES COMPLETED
     Route: 042
     Dates: start: 20161020, end: 20161020
  38. FRUSEMIDE                          /00032601/ [Concomitant]
     Active Substance: FUROSEMIDE
     Dosage: 20 MILLIGRAM, QD
     Route: 048
  39. LAXIDO [Concomitant]
     Active Substance: POLYETHYLENE GLYCOL 3350\POTASSIUM CHLORIDE\SODIUM BICARBONATE\SODIUM CHLORIDE
     Indication: CONSTIPATION
     Dosage: 2 OTHER
     Route: 048
     Dates: start: 20171009
  40. OXYCONTIN [Concomitant]
     Active Substance: OXYCODONE HYDROCHLORIDE
     Indication: PAIN
     Dosage: 100 MILLIGRAM, QD
     Route: 048
     Dates: start: 20171116, end: 20180621
  41. MACROGOL [Concomitant]
     Active Substance: POLYETHYLENE GLYCOLS
     Dosage: 2 1, QD
     Route: 048
     Dates: start: 20170922, end: 20190326
  42. TINZAPARIN [Concomitant]
     Active Substance: TINZAPARIN
     Dosage: 4500 UNIT
     Route: 058
     Dates: start: 20181205, end: 20181212
  43. LACTULOSE. [Concomitant]
     Active Substance: LACTULOSE
     Indication: CONSTIPATION
     Dosage: 10 MILLILITER
     Route: 048
     Dates: start: 20180830, end: 20190326
  44. OXYCODONE [Concomitant]
     Active Substance: OXYCODONE
     Indication: BACK PAIN
     Dosage: 40 MILLIGRAM, QD
     Route: 048
     Dates: start: 20171012, end: 20171101
  45. CO-AMOXICLAV                       /00756801/ [Concomitant]
     Active Substance: AMOXICILLIN\CLAVULANIC ACID
     Indication: LOWER RESPIRATORY TRACT INFECTION
     Dosage: 3.6 GRAM, QD
     Route: 042
     Dates: start: 20170122, end: 20170124
  46. DEXAMETHASONE. [Concomitant]
     Active Substance: DEXAMETHASONE
     Indication: METASTASES TO CENTRAL NERVOUS SYSTEM
     Dosage: 6 MILLIGRAM, QD
     Route: 048
     Dates: end: 20170125
  47. BUPRENORPHINE. [Concomitant]
     Active Substance: BUPRENORPHINE
     Dosage: 600 MILLIGRAM, QD
     Route: 048
     Dates: start: 20180308, end: 20180621
  48. CASSIA ACUTIFOLIA [Concomitant]
     Dosage: 15 MILLIGRAM, QD
     Route: 048
     Dates: start: 20170922, end: 20180404
  49. BISACODYL. [Concomitant]
     Active Substance: BISACODYL
     Indication: CONSTIPATION
     Dosage: 10 MILLIGRAM, QD
     Route: 048
     Dates: start: 20171009
  50. METOCLOPRAMIDE. [Concomitant]
     Active Substance: METOCLOPRAMIDE
     Indication: NAUSEA
     Dosage: 10 MILLIGRAM
     Route: 048
     Dates: start: 20170510, end: 20190326
  51. DALTEPARIN [Concomitant]
     Active Substance: DALTEPARIN
     Indication: DEEP VEIN THROMBOSIS
     Dosage: 18 INTERNATIONAL UNIT, QD
     Route: 058
     Dates: start: 20170418, end: 20180510
  52. MORPHINE SULPHATE [Concomitant]
     Active Substance: MORPHINE SULFATE
     Dosage: 10 MILLIGRAM
     Route: 048
     Dates: start: 20170922
  53. FILGRASTIM [Concomitant]
     Active Substance: FILGRASTIM
     Dosage: DAYS 2-6 POST CHEMO
     Route: 058
     Dates: start: 20161118, end: 20161121
  54. OXYCODONE [Concomitant]
     Active Substance: OXYCODONE
     Dosage: 180 MILLIGRAM, QD
     Route: 048
     Dates: start: 20171130, end: 20190326
  55. CHLORPHENAMINE [Concomitant]
     Active Substance: CHLORPHENIRAMINE MALEATE
     Dosage: 10 MILLIGRAM, QD
     Route: 042
     Dates: start: 20161117, end: 20161117
  56. DOCETAXEL. [Suspect]
     Active Substance: DOCETAXEL
     Indication: BREAST CANCER
  57. DEXAMETHASONE. [Concomitant]
     Active Substance: DEXAMETHASONE
     Dosage: 4 MILLIGRAM, QD
     Route: 048
     Dates: start: 20170126, end: 20170308
  58. DEXAMETHASONE. [Concomitant]
     Active Substance: DEXAMETHASONE
     Dosage: 12 MILLIGRAM
     Route: 048
     Dates: start: 20181214
  59. BUPRENORPHINE. [Concomitant]
     Active Substance: BUPRENORPHINE
     Dosage: 10 MICROGRAM, QW
     Route: 062
     Dates: start: 20181212, end: 20190326
  60. LAXIDO [Concomitant]
     Active Substance: POLYETHYLENE GLYCOL 3350\POTASSIUM CHLORIDE\SODIUM BICARBONATE\SODIUM CHLORIDE
     Dosage: 2 SACHET
     Route: 048
     Dates: start: 20171009, end: 20190326
  61. LANSOPRAZOLE. [Concomitant]
     Active Substance: LANSOPRAZOLE
     Dosage: 30 MILLIGRAM, QD
     Route: 048
  62. IBUPROFEN. [Concomitant]
     Active Substance: IBUPROFEN
     Indication: PAIN
     Dosage: 600 MILLIGRAM, QD
     Route: 048
     Dates: start: 20180308, end: 20180621
  63. AMOXICILLIN. [Concomitant]
     Active Substance: AMOXICILLIN
     Indication: LOWER RESPIRATORY TRACT INFECTION
     Dosage: 500 MILLIGRAM
     Route: 048
     Dates: start: 20181205, end: 20181205
  64. HYDROCORTISONE. [Concomitant]
     Active Substance: HYDROCORTISONE
     Dosage: 100 MILLIGRAM, QD
     Route: 042
     Dates: start: 20161117, end: 20161117
  65. CANESTEN [Concomitant]
     Active Substance: CLOTRIMAZOLE
     Dosage: 100 MILLIGRAM, QD
     Route: 065
     Dates: start: 20180419, end: 20180419
  66. OXYCODONE [Concomitant]
     Active Substance: OXYCODONE
     Dosage: 40 MILLIGRAM, QD
     Route: 048
     Dates: start: 20171101, end: 20171130

REACTIONS (4)
  - Joint swelling [Not Recovered/Not Resolved]
  - Deep vein thrombosis [Recovered/Resolved]
  - Peripheral swelling [Not Recovered/Not Resolved]
  - Swelling face [Recovered/Resolved]

NARRATIVE: CASE EVENT DATE: 20170122
